FAERS Safety Report 16176485 (Version 4)
Quarter: 2019Q2

REPORT INFORMATION
  Report Type: Spontaneous
  Country: NL (occurrence: NL)
  Receive Date: 20190409
  Receipt Date: 20190417
  Transmission Date: 20190711
  Serious: Yes (Other)
  Sender: FDA-Public Use
  Company Number: PHHY2019NL078435

PATIENT
  Age: 65 Year
  Sex: Male

DRUGS (1)
  1. CICLOSPORIN [Suspect]
     Active Substance: CYCLOSPORINE
     Indication: APLASTIC ANAEMIA
     Route: 065

REACTIONS (14)
  - Papule [Recovering/Resolving]
  - Dysarthria [Unknown]
  - Product use in unapproved indication [Unknown]
  - Arthralgia [Unknown]
  - Gait disturbance [Unknown]
  - Spinocerebellar ataxia [Unknown]
  - Ataxia [Unknown]
  - Dysstasia [Unknown]
  - Dermatomyositis [Recovering/Resolving]
  - Dysphagia [Recovering/Resolving]
  - Weight decreased [Unknown]
  - Macule [Recovering/Resolving]
  - Polyarthritis [Unknown]
  - Rash [Recovering/Resolving]

NARRATIVE: CASE EVENT DATE: 2013
